FAERS Safety Report 8252621-6 (Version None)
Quarter: 2012Q2

REPORT INFORMATION
  Report Type: 
  Country: None (occurrence: None)
  Receive Date: 20120402
  Receipt Date: 20111117
  Transmission Date: 20120825
  Serious: No
  Sender: FDA-Public Use
  Company Number: US-ABBOTT-11P-163-0876129-00

PATIENT
  Sex: Male
  Weight: 108.96 kg

DRUGS (6)
  1. ACTOS [Concomitant]
     Indication: DIABETES MELLITUS
  2. MORPHINE SULFATE [Concomitant]
     Indication: BACK PAIN
  3. LISINOPRIL [Concomitant]
     Indication: HYPERTENSION
  4. METFORMIN HCL [Concomitant]
     Indication: DIABETES MELLITUS
  5. ANDROGEL [Suspect]
     Indication: BLOOD TESTOSTERONE DECREASED
     Route: 061
     Dates: start: 20110401, end: 20110501
  6. ANDROGEL [Suspect]
     Route: 061
     Dates: start: 20110501

REACTIONS (3)
  - THERAPEUTIC RESPONSE UNEXPECTED [None]
  - APPLICATION SITE PRURITUS [None]
  - DYSPHONIA [None]
